FAERS Safety Report 5326398-8 (Version None)
Quarter: 2007Q2

REPORT INFORMATION
  Report Type: 
  Country: None (occurrence: None)
  Receive Date: 20070516
  Receipt Date: 20070504
  Transmission Date: 20071010
  Serious: Yes (Death, Hospitalization)
  Sender: FDA-Public Use
  Company Number: US-AMGEN-US221027

PATIENT
  Sex: Female
  Weight: 49.5 kg

DRUGS (5)
  1. NEUPOGEN [Suspect]
     Indication: CHEMOTHERAPY
     Route: 058
     Dates: start: 20060427, end: 20060428
  2. FEMARA [Concomitant]
     Route: 065
  3. TAXOTERE [Concomitant]
     Route: 065
  4. FUROSEMIDE [Concomitant]
     Route: 065
  5. HEPARIN SODIUM [Concomitant]
     Route: 065

REACTIONS (9)
  - ASTHENIA [None]
  - BACTERIA STOOL IDENTIFIED [None]
  - BREAST CANCER METASTATIC [None]
  - DEHYDRATION [None]
  - EATING DISORDER [None]
  - HYPOKALAEMIA [None]
  - HYPOXIA [None]
  - LETHARGY [None]
  - NEUTROPENIA [None]
